FAERS Safety Report 18740308 (Version 1)
Quarter: 2021Q1

REPORT INFORMATION
  Report Type: Spontaneous
  Country: SK (occurrence: SK)
  Receive Date: 20210114
  Receipt Date: 20210114
  Transmission Date: 20210419
  Serious: Yes (Other)
  Sender: FDA-Public Use
  Company Number: SK-GLAXOSMITHKLINE-SK2020EME259800

PATIENT
  Age: 18 Year
  Sex: Male

DRUGS (4)
  1. OMEPRAZOLE. [Concomitant]
     Active Substance: OMEPRAZOLE
     Dosage: 20 MG, 1D
  2. ZINNAT [Concomitant]
     Active Substance: CEFUROXIME
     Indication: PRODUCT USED FOR UNKNOWN INDICATION
     Dosage: UNK
  3. OMEPRAZOLE. [Concomitant]
     Active Substance: OMEPRAZOLE
     Indication: EOSINOPHILIC OESOPHAGITIS
     Dosage: 40 MG, 1D
  4. FLUTICASONE. [Suspect]
     Active Substance: FLUTICASONE
     Indication: INFLAMMATION
     Dosage: 500 UG, BID
     Route: 061

REACTIONS (3)
  - Candida infection [Recovered/Resolved]
  - Oesophageal candidiasis [Recovered/Resolved]
  - Off label use [Unknown]
